FAERS Safety Report 5865940-5 (Version None)
Quarter: 2008Q3

REPORT INFORMATION
  Report Type: 
  Country: None (occurrence: None)
  Receive Date: 20080829
  Receipt Date: 20080819
  Transmission Date: 20090109
  Serious: Yes (Hospitalization)
  Sender: FDA-Public Use
  Company Number: GB-PFIZER INC-2008029112

PATIENT
  Age: 88 Year
  Sex: Male

DRUGS (6)
  1. LYRICA [Suspect]
     Route: 048
     Dates: start: 20080225, end: 20080307
  2. CO-AMILOFRUSE [Concomitant]
     Indication: HYPERTENSION
     Route: 048
  3. METOCLOPRAMIDE [Concomitant]
     Dosage: DAILY DOSE:45MG
     Route: 048
  4. OMEPRAZOLE [Concomitant]
     Route: 048
  5. RAMIPRIL [Concomitant]
     Indication: HYPERTENSION
     Route: 048
  6. TAMSULOSIN HCL [Concomitant]
     Route: 048

REACTIONS (5)
  - ALANINE AMINOTRANSFERASE INCREASED [None]
  - BLOOD ALBUMIN INCREASED [None]
  - BLOOD ALKALINE PHOSPHATASE INCREASED [None]
  - BLOOD BILIRUBIN INCREASED [None]
  - LIVER FUNCTION TEST ABNORMAL [None]
